FAERS Safety Report 8322836-7 (Version None)
Quarter: 2012Q2

REPORT INFORMATION
  Report Type: 
  Country: None (occurrence: None)
  Receive Date: 20120430
  Receipt Date: 20120425
  Transmission Date: 20120825
  Serious: Yes (Life-Threatening, Hospitalization, Disabling, Other)
  Sender: FDA-Public Use
  Company Number: GXKR2012DE001263

PATIENT
  Sex: Female

DRUGS (2)
  1. DEXAHEXAL [Suspect]
     Indication: BACK PAIN
     Dosage: 4 MG, UNK
     Route: 030
  2. ETOFENAMATE [Concomitant]

REACTIONS (2)
  - CENTRAL NERVOUS SYSTEM INFECTION [None]
  - INJECTION RELATED REACTION [None]
